FAERS Safety Report 12693584 (Version 1)
Quarter: 2016Q3

REPORT INFORMATION
  Report Type: Spontaneous
  Country: FR (occurrence: FR)
  Receive Date: 20160829
  Receipt Date: 20160829
  Transmission Date: 20161109
  Serious: Yes (Death, Life-Threatening)
  Sender: FDA-Public Use
  Company Number: FR-PFIZER INC-2016393458

PATIENT
  Age: 28 Year
  Sex: Male

DRUGS (9)
  1. METHOTREXATE BIODIM [Suspect]
     Active Substance: METHOTREXATE
     Indication: LYMPHOCYTIC LEUKAEMIA
     Dosage: 15 MG, 1X/DAY
     Route: 037
     Dates: start: 20160506, end: 20160506
  2. EVOLTRA [Suspect]
     Active Substance: CLOFARABINE
     Dosage: 36 MG, UNK
     Route: 042
     Dates: start: 20160504, end: 20160504
  3. MITOXANTRONE HYDROCHLORIDE. [Suspect]
     Active Substance: MITOXANTRONE HYDROCHLORIDE
     Indication: LYMPHOCYTIC LEUKAEMIA
     Dosage: 14.6 MG, UNK
     Route: 042
     Dates: start: 20160504, end: 20160504
  4. ARACYTINE [Suspect]
     Active Substance: CYTARABINE
     Indication: LYMPHOCYTIC LEUKAEMIA
     Dosage: UNK
     Route: 042
     Dates: start: 20160506, end: 20160506
  5. ETOPOPHOS [Suspect]
     Active Substance: ETOPOSIDE PHOSPHATE
     Dosage: 270 MG, UNK
     Route: 042
     Dates: start: 20160506, end: 20160506
  6. EVOLTRA [Suspect]
     Active Substance: CLOFARABINE
     Dosage: 36 MG, UNK
     Route: 042
     Dates: start: 20160506, end: 20160506
  7. ETOPOPHOS [Suspect]
     Active Substance: ETOPOSIDE PHOSPHATE
     Indication: LYMPHOCYTIC LEUKAEMIA
     Dosage: 270 MG, UNK
     Route: 042
     Dates: start: 20160504, end: 20160504
  8. EVOLTRA [Suspect]
     Active Substance: CLOFARABINE
     Indication: LYMPHOCYTIC LEUKAEMIA
     Dosage: 36 MG, UNK
     Route: 042
     Dates: start: 20160503, end: 20160503
  9. MITOXANTRONE HYDROCHLORIDE. [Suspect]
     Active Substance: MITOXANTRONE HYDROCHLORIDE
     Dosage: 14.6 MG, UNK
     Route: 042
     Dates: start: 20160506, end: 20160506

REACTIONS (2)
  - Febrile bone marrow aplasia [Recovered/Resolved]
  - Septic shock [Fatal]

NARRATIVE: CASE EVENT DATE: 20160509
